FAERS Safety Report 18800061 (Version 2)
Quarter: 2021Q1

REPORT INFORMATION
  Report Type: Spontaneous
  Country: JP (occurrence: JP)
  Receive Date: 20210128
  Receipt Date: 20210317
  Transmission Date: 20210419
  Serious: Yes (Other)
  Sender: FDA-Public Use
  Company Number: JP-INCYTE CORPORATION-2021IN000571

PATIENT

DRUGS (3)
  1. JAKAVI [Suspect]
     Active Substance: RUXOLITINIB
     Indication: MYELOFIBROSIS
     Dosage: 10 MG
     Route: 048
     Dates: start: 20200807
  2. JAKAVI [Suspect]
     Active Substance: RUXOLITINIB
     Dosage: 20 MG
     Route: 048
  3. JAKAVI [Suspect]
     Active Substance: RUXOLITINIB
     Dosage: 30 MG
     Route: 048
     Dates: start: 20201016, end: 20201224

REACTIONS (6)
  - Platelet count decreased [Recovering/Resolving]
  - Concomitant disease aggravated [Unknown]
  - Hodgkin^s disease [Unknown]
  - Epstein-Barr virus infection [Recovering/Resolving]
  - Lymphoproliferative disorder [Unknown]
  - Blood lactate dehydrogenase decreased [Recovering/Resolving]

NARRATIVE: CASE EVENT DATE: 20200809
